FAERS Safety Report 7967442-9 (Version None)
Quarter: 2011Q4

REPORT INFORMATION
  Report Type: 
  Country: None (occurrence: None)
  Receive Date: 20111209
  Receipt Date: 20111202
  Transmission Date: 20120403
  Serious: Yes (Disabling)
  Sender: FDA-Public Use
  Company Number: GB-B.I. PHARMACEUTICALS,INC./RIDGEFIELD-2011-UK-00882UK

PATIENT
  Sex: Male
  Weight: 86 kg

DRUGS (6)
  1. PRAMIPEXOLE DIHYDROCHLORIDE [Suspect]
     Indication: RESTLESS LEGS SYNDROME
     Dosage: 125MCG X1/1DAYS
     Route: 048
     Dates: start: 20110216, end: 20110517
  2. AMITRIPTYLINE HCL [Concomitant]
     Dosage: 10MG  1/1DAYS
     Route: 048
     Dates: start: 20110511
  3. FEXOFENADINE [Concomitant]
     Dosage: 120MG 1/1DAYS
     Route: 048
     Dates: start: 20030101
  4. CROMOLYN SODIUM [Concomitant]
     Dosage: 1DF 4/1DAYS
     Route: 061
     Dates: start: 20061122
  5. ESOMEPRAZOLE SODIUM [Concomitant]
     Dosage: 40 MG
     Route: 048
     Dates: start: 20040302
  6. GAVISCON [Concomitant]
     Dosage: 5ML AS NECESSARY
     Route: 048

REACTIONS (1)
  - IVTH NERVE PARESIS [None]
